FAERS Safety Report 19480874 (Version 2)
Quarter: 2021Q3

REPORT INFORMATION
  Report Type: Spontaneous
  Country: US (occurrence: US)
  Receive Date: 20210701
  Receipt Date: 20210819
  Transmission Date: 20211014
  Serious: No
  Sender: FDA-Public Use
  Company Number: US-TEVA-2021-US-1924699

PATIENT
  Age: 73 Year
  Sex: Female
  Weight: 68.04 kg

DRUGS (4)
  1. ESTRADIOL. [Concomitant]
     Active Substance: ESTRADIOL
     Route: 065
  2. PREDNISONE. [Concomitant]
     Active Substance: PREDNISONE
     Route: 065
  3. AJOVY [Suspect]
     Active Substance: FREMANEZUMAB-VFRM
     Indication: MIGRAINE
     Dosage: 7.5 MILLIGRAM DAILY; 225 MG / 1.5 ML
     Route: 065
     Dates: start: 20210605
  4. CYMBALTA [Concomitant]
     Active Substance: DULOXETINE HYDROCHLORIDE
     Route: 065

REACTIONS (6)
  - Myalgia [Unknown]
  - Drug ineffective [Unknown]
  - Muscle spasms [Unknown]
  - Dyspnoea [Unknown]
  - Arthralgia [Unknown]
  - Pain [Unknown]

NARRATIVE: CASE EVENT DATE: 202106
